FAERS Safety Report 9648343 (Version 1)
Quarter: 2013Q4

REPORT INFORMATION
  Report Type: Spontaneous
  Country: US (occurrence: None)
  Receive Date: 20131025
  Receipt Date: 20131025
  Transmission Date: 20140711
  Serious: No
  Sender: FDA-Public Use
  Company Number: None

PATIENT
  Age: 3 Month
  Sex: Female
  Weight: 5.44 kg

DRUGS (1)
  1. LANSOPRAZOLE [Suspect]
     Indication: GASTROOESOPHAGEAL REFLUX DISEASE
     Route: 048
     Dates: start: 20130930, end: 20131022

REACTIONS (8)
  - Drug effect decreased [None]
  - Middle insomnia [None]
  - Screaming [None]
  - Pain [None]
  - Crying [None]
  - Hiccups [None]
  - Product compounding quality issue [None]
  - Product substitution issue [None]
